FAERS Safety Report 9278087 (Version 1)
Quarter: 2012Q4

REPORT INFORMATION
  Report Type: 
  Country: US (occurrence: None)
  Receive Date: 20121210
  Receipt Date: 20121210
  Transmission Date: 20130627
  Serious: Yes (Other)
  Sender: FDA-Public Use
  Company Number: 1211-721

PATIENT
  Sex: Male

DRUGS (1)
  1. EYLEA (AFLIBERCEPT)(INJECTION)(AFLIBERCEPT) [Suspect]
     Indication: CENTRAL RETINAL VEIN OCCLUSION
     Route: 031

REACTIONS (2)
  - Retinal vein occlusion [None]
  - Vision blurred [None]
